FAERS Safety Report 9795791 (Version 2)
Quarter: 2014Q1

REPORT INFORMATION
  Report Type: Spontaneous
  Country: US (occurrence: US)
  Receive Date: 20140103
  Receipt Date: 20140217
  Transmission Date: 20141002
  Serious: Yes (Hospitalization, Other)
  Sender: FDA-Public Use
  Company Number: US-BAYER-2013-157128

PATIENT
  Age: 35 Year
  Sex: Female
  Weight: 113.38 kg

DRUGS (8)
  1. MIRENA [Suspect]
     Indication: CONTRACEPTION
     Dosage: 20 MCG/24HR, CONT
     Route: 015
     Dates: start: 20110729, end: 20121016
  2. ALLEGRA [Concomitant]
     Indication: MULTIPLE ALLERGIES
     Dosage: UNK
     Dates: start: 2009, end: 2012
  3. ALBUTEROL SULFATE [Concomitant]
     Indication: MULTIPLE ALLERGIES
     Dosage: UNK
     Dates: start: 2010, end: 2012
  4. ALBUTEROL SULFATE [Concomitant]
     Indication: ASTHMA
  5. BECLOMETHASONE DIPROPIONATE [Concomitant]
     Indication: MULTIPLE ALLERGIES
     Dosage: UNK
     Dates: start: 2010, end: 2012
  6. BECLOMETHASONE DIPROPIONATE [Concomitant]
     Indication: ASTHMA
  7. BUDESONIDE [Concomitant]
     Indication: MULTIPLE ALLERGIES
     Dosage: UNK
     Route: 045
     Dates: start: 2010, end: 2012
  8. BUDESONIDE [Concomitant]
     Indication: ASTHMA

REACTIONS (7)
  - Device dislocation [None]
  - Genital haemorrhage [None]
  - Injury [None]
  - Pain [None]
  - Amenorrhoea [None]
  - Emotional distress [None]
  - Anxiety [None]
